FAERS Safety Report 15289200 (Version 21)
Quarter: 2019Q4

REPORT INFORMATION
  Report Type: Spontaneous
  Country: DE (occurrence: DE)
  Receive Date: 20180817
  Receipt Date: 20191127
  Transmission Date: 20200122
  Serious: Yes (Hospitalization, Disabling, Other)
  Sender: FDA-Public Use
  Company Number: DE-009507513-1806DEU012267

PATIENT
  Age: 28 Year
  Sex: Male
  Weight: 83 kg

DRUGS (5)
  1. PROPECIA [Suspect]
     Active Substance: FINASTERIDE
     Indication: ANDROGENETIC ALOPECIA
     Dosage: 1 MG, DAILY
     Route: 048
     Dates: start: 200001, end: 200612
  2. FLUOXETINE [Suspect]
     Active Substance: FLUOXETINE HYDROCHLORIDE
     Dosage: UNK
  3. AMOXICILLIN. [Suspect]
     Active Substance: AMOXICILLIN
     Dosage: UNK
     Route: 065
     Dates: start: 200505
  4. PROPECIA [Suspect]
     Active Substance: FINASTERIDE
     Indication: ALOPECIA
  5. DOXEPIN HYDROCHLORIDE. [Suspect]
     Active Substance: DOXEPIN HYDROCHLORIDE
     Dosage: UNK

REACTIONS (119)
  - Obstructive airways disorder [Unknown]
  - Middle insomnia [Not Recovered/Not Resolved]
  - Erectile dysfunction [Not Recovered/Not Resolved]
  - Skin papilloma [Unknown]
  - Tooth disorder [Unknown]
  - Melanocytic hyperplasia [Unknown]
  - Genital cyst [Unknown]
  - Rosacea [Unknown]
  - Cognitive disorder [Not Recovered/Not Resolved]
  - Neck pain [Unknown]
  - Papule [Unknown]
  - Feeling abnormal [Not Recovered/Not Resolved]
  - Lordosis [Unknown]
  - Lactose intolerance [Unknown]
  - Arrhythmia [Unknown]
  - Anxiety [Not Recovered/Not Resolved]
  - Body fat disorder [Not Recovered/Not Resolved]
  - Road traffic accident [Unknown]
  - Balanoposthitis [Unknown]
  - Cervicobrachial syndrome [Unknown]
  - Urinary tract infection [Recovered/Resolved]
  - Pharyngitis [Unknown]
  - Sinusitis [Recovered/Resolved]
  - Haemorrhoids [Unknown]
  - Synovial cyst [Unknown]
  - Intervertebral disc degeneration [Unknown]
  - Pain in extremity [Unknown]
  - Restlessness [Not Recovered/Not Resolved]
  - Gastrooesophageal reflux disease [Unknown]
  - General physical health deterioration [Not Recovered/Not Resolved]
  - Chronic fatigue syndrome [Not Recovered/Not Resolved]
  - Bradyphrenia [Not Recovered/Not Resolved]
  - Asthma [Recovered/Resolved]
  - Muscle rupture [Unknown]
  - Sleep apnoea syndrome [Unknown]
  - Headache [Not Recovered/Not Resolved]
  - Tinnitus [Not Recovered/Not Resolved]
  - Dermatitis contact [Unknown]
  - Joint injury [Unknown]
  - Dizziness [Unknown]
  - Paralysis [Not Recovered/Not Resolved]
  - Finger deformity [Unknown]
  - Herpes simplex [Unknown]
  - Dermal cyst [Unknown]
  - Dry skin [Unknown]
  - Pharyngitis [Not Recovered/Not Resolved]
  - Bronchitis [Not Recovered/Not Resolved]
  - Memory impairment [Not Recovered/Not Resolved]
  - Limb injury [Unknown]
  - Exostosis of external ear canal [Unknown]
  - Periodontitis [Unknown]
  - Eczema [Unknown]
  - Laryngitis [Unknown]
  - Depression [Not Recovered/Not Resolved]
  - Illness anxiety disorder [Unknown]
  - Infection [Unknown]
  - Balanitis candida [Unknown]
  - Anogenital warts [Unknown]
  - Bronchitis [Not Recovered/Not Resolved]
  - Patellofemoral pain syndrome [Unknown]
  - Mental disorder [Unknown]
  - Nervousness [Not Recovered/Not Resolved]
  - Disturbance in attention [Not Recovered/Not Resolved]
  - Skin necrosis [Unknown]
  - Bronchitis [Not Recovered/Not Resolved]
  - Osteochondrosis [Unknown]
  - Rhinitis [Unknown]
  - Compartment syndrome [Unknown]
  - Inguinal hernia [Unknown]
  - Stress [Unknown]
  - Influenza [Unknown]
  - Arthritis [Unknown]
  - Arthropathy [Unknown]
  - Dyshidrotic eczema [Unknown]
  - Infection [Unknown]
  - Genital herpes [Not Recovered/Not Resolved]
  - Cough [Unknown]
  - Anal haemorrhage [Unknown]
  - Genital herpes [Unknown]
  - Bone pain [Unknown]
  - Ankle fracture [Unknown]
  - Meniscus injury [Unknown]
  - Personality disorder [Not Recovered/Not Resolved]
  - Gingivitis [Unknown]
  - Libido decreased [Not Recovered/Not Resolved]
  - Post 5-alpha-reductase inhibitor syndrome [Unknown]
  - Adverse event [Unknown]
  - Aggression [Unknown]
  - Reduced facial expression [Not Recovered/Not Resolved]
  - Epicondylitis [Unknown]
  - Initial insomnia [Not Recovered/Not Resolved]
  - Genital haemorrhage [Unknown]
  - Melanocytic naevus [Recovered/Resolved]
  - Dermal cyst [Unknown]
  - Urinary tract infection [Unknown]
  - Visual impairment [Unknown]
  - Intertrigo [Unknown]
  - Herpes simplex [Unknown]
  - Infection [Not Recovered/Not Resolved]
  - Spinal osteoarthritis [Unknown]
  - Otitis externa [Recovering/Resolving]
  - Phobia [Unknown]
  - Ligament sprain [Unknown]
  - Radiculopathy [Unknown]
  - Denture wearer [Unknown]
  - Immune system disorder [Unknown]
  - Tooth extraction [Unknown]
  - Somatic symptom disorder [Unknown]
  - Pharyngitis [Unknown]
  - Skin atrophy [Not Recovered/Not Resolved]
  - Infection [Unknown]
  - Impetigo [Unknown]
  - Fibroma [Unknown]
  - Muscle disorder [Unknown]
  - Flatulence [Unknown]
  - Plica syndrome [Unknown]
  - Dissociation [Not Recovered/Not Resolved]
  - Foot deformity [Unknown]
  - Reactive gastropathy [Unknown]

NARRATIVE: CASE EVENT DATE: 20010510
